FAERS Safety Report 11126344 (Version 1)
Quarter: 2015Q2

REPORT INFORMATION
  Report Type: Report from Study
  Country: US (occurrence: US)
  Receive Date: 20150520
  Receipt Date: 20150520
  Transmission Date: 20150821
  Serious: Yes (Other)
  Sender: FDA-Public Use
  Company Number: PHEH2015US009425

PATIENT

DRUGS (1)
  1. GLEEVEC [Suspect]
     Active Substance: IMATINIB MESYLATE
     Indication: ACUTE LYMPHOCYTIC LEUKAEMIA
     Dosage: 400 MG, QD (4 TABLETS)
     Route: 048

REACTIONS (5)
  - Asthenia [Unknown]
  - Confusional state [Unknown]
  - Fatigue [Unknown]
  - Dementia [Unknown]
  - Haemoglobin decreased [Unknown]
